FAERS Safety Report 11344573 (Version 1)
Quarter: 2015Q3

REPORT INFORMATION
  Report Type: Spontaneous
  Country: US (occurrence: None)
  Receive Date: 20150805
  Receipt Date: 20150805
  Transmission Date: 20151125
  Serious: No
  Sender: FDA-Public Use
  Company Number: None

PATIENT
  Age: 69 Year
  Sex: Female
  Weight: 57.61 kg

DRUGS (12)
  1. PRAVASTITIN [Concomitant]
  2. CENTRUM SILVER [Concomitant]
     Active Substance: VITAMINS
  3. MYRBETRIC [Concomitant]
  4. FLAXSEED [Concomitant]
     Active Substance: FLAX SEED
  5. BABY ASPIRIN [Concomitant]
     Active Substance: ASPIRIN
  6. DEXILANT [Concomitant]
     Active Substance: DEXLANSOPRAZOLE
  7. FLUOCINOLONE ACETONIDE. [Suspect]
     Active Substance: FLUOCINOLONE ACETONIDE
     Indication: SEBORRHOEA
     Dosage: USE AT BEDTIME APPLIED TO A SURFACE, USUALLY THE SKIN
     Route: 061
     Dates: start: 20150718, end: 20150801
  8. CALCIUM [Concomitant]
     Active Substance: CALCIUM
  9. COLACE [Concomitant]
     Active Substance: DOCUSATE SODIUM
  10. METAMUCIL [Concomitant]
     Active Substance: PLANTAGO SEED
  11. LINZESS [Concomitant]
     Active Substance: LINACLOTIDE
  12. WELLBUTRIN [Concomitant]
     Active Substance: BUPROPION HYDROCHLORIDE

REACTIONS (3)
  - Drug ineffective [None]
  - Unevaluable event [None]
  - Hair colour changes [None]

NARRATIVE: CASE EVENT DATE: 20150803
